FAERS Safety Report 18549110 (Version 1)
Quarter: 2020Q4

REPORT INFORMATION
  Report Type: Spontaneous
  Country: US (occurrence: US)
  Receive Date: 20201126
  Receipt Date: 20201126
  Transmission Date: 20210114
  Serious: No
  Sender: FDA-Public Use
  Company Number: US-GLENMARK PHARMACEUTICALS-2020GMK049351

PATIENT

DRUGS (1)
  1. COLESEVELAM HYDROCHLORIDE TABLETS [625MG] [Suspect]
     Active Substance: COLESEVELAM HYDROCHLORIDE
     Indication: PRODUCT USED FOR UNKNOWN INDICATION
     Dosage: 625 MILLIGRAM, TID (3 TABLETS A DAY)
     Route: 048

REACTIONS (4)
  - Product use issue [Unknown]
  - Poor quality product administered [Unknown]
  - Product physical issue [Unknown]
  - Intentional product use issue [Unknown]
